FAERS Safety Report 12256727 (Version 1)
Quarter: 2016Q2

REPORT INFORMATION
  Report Type: Spontaneous
  Country: IN (occurrence: IN)
  Receive Date: 20160412
  Receipt Date: 20160412
  Transmission Date: 20160815
  Serious: Yes (Death)
  Sender: FDA-Public Use
  Company Number: IN-PFIZER INC-2015474126

PATIENT
  Age: 48 Year
  Sex: Male

DRUGS (1)
  1. SUTENT [Suspect]
     Active Substance: SUNITINIB MALATE
     Indication: GASTROINTESTINAL STROMAL TUMOUR
     Dosage: , DAILY FOR TWO WEEKS ON AND ONE WEEK OFF50 MG, CYCLIC
     Route: 048
     Dates: start: 20151215

REACTIONS (4)
  - Nausea [Recovered/Resolved]
  - Mouth ulceration [Recovered/Resolved]
  - Blood pressure increased [Recovered/Resolved]
  - Death [Fatal]

NARRATIVE: CASE EVENT DATE: 201512
